FAERS Safety Report 23754130 (Version 1)
Quarter: 2024Q2

REPORT INFORMATION
  Report Type: Report from Study
  Country: FR (occurrence: FR)
  Receive Date: 20240417
  Receipt Date: 20240417
  Transmission Date: 20240716
  Serious: Yes (Other)
  Sender: FDA-Public Use
  Company Number: FR-MIRATI-MT2024PM05795

PATIENT
  Age: 76 Year
  Sex: Female
  Weight: 88 kg

DRUGS (6)
  1. KRAZATI [Suspect]
     Active Substance: ADAGRASIB
     Indication: Non-small cell lung cancer
     Dosage: 600 MG, BID
     Route: 048
     Dates: start: 20231130, end: 20240112
  2. KRAZATI [Suspect]
     Active Substance: ADAGRASIB
     Dosage: 400 MG, BID
     Route: 048
     Dates: start: 20240116
  3. PREDNISOLONE [Concomitant]
     Active Substance: PREDNISOLONE
     Indication: Back pain
     Dosage: 40 MG, QD (2X 20 MG ONCE DAILY)
     Route: 048
     Dates: start: 20231215, end: 20231225
  4. LEVOTHYROXINE [Concomitant]
     Active Substance: LEVOTHYROXINE\LEVOTHYROXINE SODIUM
     Indication: Hypothyroidism
     Dosage: 100 UG, QD (STARTED BEFORE 01-JAN-2023)
     Route: 048
  5. COLCHICINE [Concomitant]
     Active Substance: COLCHICINE
     Indication: Gout
     Dosage: HALF A TAB, QD
     Route: 048
     Dates: start: 20231120
  6. FEBUXOSTAT ACCORD [Concomitant]
     Indication: Gout
     Dosage: 80 MG, ONCE EVERY 2 DAYS
     Route: 048
     Dates: start: 20231120

REACTIONS (1)
  - Renal failure [Recovered/Resolved]

NARRATIVE: CASE EVENT DATE: 20240112
